FAERS Safety Report 7490463-X (Version None)
Quarter: 2011Q2

REPORT INFORMATION
  Report Type: 
  Country: None (occurrence: None)
  Receive Date: 20110519
  Receipt Date: 20110509
  Transmission Date: 20111010
  Serious: Yes (Hospitalization)
  Sender: FDA-Public Use
  Company Number: US-NAPPMUNDI-USA-2010-0045286

PATIENT
  Sex: Male

DRUGS (15)
  1. PENTASA [Concomitant]
  2. AMARYL [Concomitant]
  3. FISH OIL [Concomitant]
  4. LISINOPRIL [Concomitant]
  5. BLINDED THERAPY [Suspect]
     Indication: TYPE 2 DIABETES MELLITUS
     Dosage: UNK
     Route: 048
     Dates: start: 20100608, end: 20100729
  6. SODIUM CHLORIDE [Suspect]
     Indication: PRODUCT USED FOR UNKNOWN INDICATION
     Dosage: UNK
  7. COMBIGAN [Concomitant]
  8. ASPIRIN [Concomitant]
  9. DILAUDID [Suspect]
     Indication: PRODUCT USED FOR UNKNOWN INDICATION
     Dosage: 1 MG, UNK
  10. CRESTOR [Concomitant]
  11. JANUVIA [Concomitant]
     Dosage: UNK
     Dates: start: 20100610
  12. TENORMIN [Concomitant]
  13. LUMIGAN [Concomitant]
  14. METRONIDAZOLE [Concomitant]
     Dosage: UNK
     Dates: start: 20100507
  15. METHYLPREDNISOLONE SODIUM SUCCINATE [Suspect]
     Indication: PRODUCT USED FOR UNKNOWN INDICATION
     Dosage: 30 MG, UNK

REACTIONS (1)
  - SMALL INTESTINAL OBSTRUCTION [None]
